FAERS Safety Report 6774607-0 (Version None)
Quarter: 2010Q2

REPORT INFORMATION
  Report Type: 
  Country: None (occurrence: None)
  Receive Date: 20100617
  Receipt Date: 20100607
  Transmission Date: 20101027
  Serious: Yes (Hospitalization)
  Sender: FDA-Public Use
  Company Number: JP-ROCHE-679912

PATIENT
  Sex: Female
  Weight: 34 kg

DRUGS (6)
  1. AVASTIN [Suspect]
     Indication: LARGE INTESTINE CARCINOMA
     Route: 041
     Dates: start: 20091225, end: 20091225
  2. LEUCOVORIN CALCIUM [Concomitant]
     Route: 041
  3. TOPOTECAN [Concomitant]
     Route: 041
  4. FLUOROURACIL [Concomitant]
     Route: 041
  5. GRANISETRON [Concomitant]
     Route: 041
  6. DECADRON-PHOSPHAT [Concomitant]
     Route: 042

REACTIONS (2)
  - CEREBRAL ISCHAEMIA [None]
  - HYPERTENSION [None]
